FAERS Safety Report 5455666-4 (Version None)
Quarter: 2007Q3

REPORT INFORMATION
  Report Type: 
  Country: None (occurrence: None)
  Receive Date: 20070918
  Receipt Date: 20070702
  Transmission Date: 20080115
  Serious: Yes (Other)
  Sender: FDA-Public Use
  Company Number: US-ASTRAZENECA-2006UW22317

PATIENT
  Age: 48 Year
  Sex: Female
  Weight: 122.3 kg

DRUGS (5)
  1. SEROQUEL [Suspect]
     Indication: BIPOLAR DISORDER
     Route: 048
     Dates: start: 20030401
  2. SEROQUEL [Suspect]
     Indication: DEPRESSION
     Route: 048
     Dates: start: 20030401
  3. HALDOL [Concomitant]
     Dates: start: 19840101, end: 20000101
  4. RISPERDAL [Concomitant]
     Dates: start: 19840101
  5. ZYPREXA [Concomitant]
     Dates: start: 19960101, end: 19990101

REACTIONS (2)
  - DIABETES MELLITUS [None]
  - DIABETIC COMA [None]
